FAERS Safety Report 7849493-8 (Version None)
Quarter: 2011Q4

REPORT INFORMATION
  Report Type: 
  Country: None (occurrence: None)
  Receive Date: 20111024
  Receipt Date: 20111011
  Transmission Date: 20120403
  Serious: Yes (Death, Life-Threatening)
  Sender: FDA-Public Use
  Company Number: 124882

PATIENT
  Age: 56 Year
  Sex: Male

DRUGS (1)
  1. CERUBIDINE [Suspect]
     Indication: ACUTE LEUKAEMIA
     Dosage: 60MG/M2, 1X/DAY,IV
     Route: 042
     Dates: start: 20100813, end: 20100815

REACTIONS (8)
  - VENOOCCLUSIVE LIVER DISEASE [None]
  - FEBRILE BONE MARROW APLASIA [None]
  - DIALYSIS [None]
  - SEPTIC SHOCK [None]
  - PLATELET COUNT DECREASED [None]
  - RENAL FAILURE [None]
  - CYTOLYTIC HEPATITIS [None]
  - COAGULATION FACTOR V LEVEL DECREASED [None]
